FAERS Safety Report 17755456 (Version 1)
Quarter: 2020Q2

REPORT INFORMATION
  Report Type: Report from Study
  Country: US (occurrence: US)
  Receive Date: 20200507
  Receipt Date: 20200507
  Transmission Date: 20200714
  Serious: Yes (Hospitalization)
  Sender: FDA-Public Use
  Company Number: US-BAUSCH-BL-2020-012665

PATIENT
  Age: 54 Year
  Sex: Male

DRUGS (2)
  1. APRISO [Suspect]
     Active Substance: MESALAMINE
     Indication: COLITIS ULCERATIVE
     Dosage: DISCONTINUED FOR 2-3 WEEKS
     Route: 048
     Dates: end: 201906
  2. APRISO [Suspect]
     Active Substance: MESALAMINE
     Dosage: SLOWLY RE-STARTED AT A LESSER DOSING WHICH THEN GRADUALLY INCREASED
     Route: 048

REACTIONS (2)
  - Memory impairment [Unknown]
  - Cerebral haemorrhage [Unknown]

NARRATIVE: CASE EVENT DATE: 2019
